FAERS Safety Report 8232336-0 (Version None)
Quarter: 2012Q1

REPORT INFORMATION
  Report Type: 
  Country: None (occurrence: None)
  Receive Date: 20120323
  Receipt Date: 20120316
  Transmission Date: 20120608
  Serious: Yes (Congenital Anomaly)
  Sender: FDA-Public Use
  Company Number: US-GLAXOSMITHKLINE-A0934116A

PATIENT
  Sex: Female

DRUGS (8)
  1. LANTUS [Concomitant]
     Route: 064
  2. MULTI-VITAMINS [Concomitant]
  3. SIMVASTATIN [Concomitant]
     Indication: BLOOD CHOLESTEROL
     Dosage: 40MG PER DAY
     Route: 064
     Dates: start: 20000101
  4. PREDNISONE TAB [Concomitant]
  5. INSULIN [Concomitant]
  6. ZESTORETIC [Concomitant]
  7. PAXIL [Suspect]
     Indication: DEPRESSION
     Dosage: 40MG PER DAY
     Route: 064
     Dates: start: 20000101
  8. FOLIC ACID [Concomitant]
     Indication: RHEUMATOID ARTHRITIS
     Dosage: 1MG PER DAY
     Route: 064
     Dates: start: 20000101

REACTIONS (13)
  - VENTRICULAR SEPTAL DEFECT [None]
  - PATENT DUCTUS ARTERIOSUS [None]
  - FOETAL EXPOSURE DURING PREGNANCY [None]
  - ATRIAL SEPTAL DEFECT [None]
  - CONGENITAL HEART VALVE DISORDER [None]
  - INTRAVENTRICULAR HAEMORRHAGE NEONATAL [None]
  - EAR MALFORMATION [None]
  - RIB HYPOPLASIA [None]
  - PLAGIOCEPHALY [None]
  - DEAFNESS [None]
  - PULMONARY ARTERY STENOSIS CONGENITAL [None]
  - SPINE MALFORMATION [None]
  - HEMIVERTEBRA [None]
